FAERS Safety Report 8249488-9 (Version None)
Quarter: 2012Q2

REPORT INFORMATION
  Report Type: 
  Country: None (occurrence: None)
  Receive Date: 20120402
  Receipt Date: 20120321
  Transmission Date: 20120825
  Serious: No
  Sender: FDA-Public Use
  Company Number: US-JNJFOC-20120312254

PATIENT
  Sex: Female

DRUGS (5)
  1. GEODON [Concomitant]
     Route: 048
  2. ATIVAN [Concomitant]
     Route: 048
  3. EFFEXOR XR [Concomitant]
     Route: 048
  4. CAMPRAL [Concomitant]
     Route: 048
  5. INVEGA SUSTENNA [Suspect]
     Indication: PRODUCT USED FOR UNKNOWN INDICATION
     Route: 030
     Dates: start: 20110701, end: 20120301

REACTIONS (2)
  - BLOOD PROLACTIN INCREASED [None]
  - GALACTORRHOEA [None]
